FAERS Safety Report 13342994 (Version 1)
Quarter: 2017Q1

REPORT INFORMATION
  Report Type: Spontaneous
  Country: CH (occurrence: CH)
  Receive Date: 20170316
  Receipt Date: 20170316
  Transmission Date: 20170428
  Serious: Yes (Hospitalization, Other)
  Sender: FDA-Public Use
  Company Number: CH-PFIZER INC-2013BAX017334

PATIENT
  Age: 36 Year
  Sex: Female
  Weight: 47 kg

DRUGS (3)
  1. TEMESTA [Suspect]
     Active Substance: LORAZEPAM
     Dosage: 20 MG, SINGLE
     Route: 048
     Dates: start: 20120203, end: 20120203
  2. FSME-IMMUN [Suspect]
     Active Substance: TICK-BORNE ENCEPHALITIS VACCINE
     Dosage: 1 DF, SINGLE
     Route: 030
     Dates: start: 20100827, end: 20100827
  3. FSME-IMMUN [Suspect]
     Active Substance: TICK-BORNE ENCEPHALITIS VACCINE
     Indication: IMMUNISATION
     Dosage: 1 DF, SINGLE
     Route: 030
     Dates: start: 20100616, end: 20100616

REACTIONS (12)
  - Upper motor neurone lesion [Unknown]
  - Muscle spasms [Recovered/Resolved]
  - Influenza like illness [Unknown]
  - Dizziness [Unknown]
  - Amyotrophic lateral sclerosis [Unknown]
  - Lymphadenopathy [Unknown]
  - Suicide attempt [Unknown]
  - Neck pain [Unknown]
  - Nervous system disorder [Recovered/Resolved]
  - Fine motor skill dysfunction [Recovering/Resolving]
  - Gait disturbance [Not Recovered/Not Resolved]
  - Speech disorder [Recovering/Resolving]

NARRATIVE: CASE EVENT DATE: 2010
